FAERS Safety Report 5095438-6 (Version None)
Quarter: 2006Q3

REPORT INFORMATION
  Report Type: 
  Country: None (occurrence: None)
  Receive Date: 20060901
  Receipt Date: 20060825
  Transmission Date: 20061208
  Serious: Yes (Hospitalization)
  Sender: FDA-Public Use
  Company Number: JP-ROCHE-461058

PATIENT
  Age: 61 Year
  Sex: Male

DRUGS (7)
  1. PANALDINE [Suspect]
     Indication: CEREBRAL INFARCTION
     Route: 048
     Dates: start: 20060705, end: 20060807
  2. ADALAT [Concomitant]
     Route: 048
  3. GLUCOBAY [Concomitant]
     Route: 048
  4. SHOUSAIKOTOU [Concomitant]
     Route: 048
  5. 8-HOUR BAYER [Concomitant]
     Route: 048
  6. HALCION [Concomitant]
     Route: 048
  7. ALINAMIN [Concomitant]
     Dosage: REPORTED AS ALANMIN S
     Route: 048

REACTIONS (4)
  - AGRANULOCYTOSIS [None]
  - GRANULOCYTOPENIA [None]
  - HEADACHE [None]
  - PYREXIA [None]
